FAERS Safety Report 25259883 (Version 1)
Quarter: 2025Q2

REPORT INFORMATION
  Report Type: Spontaneous
  Country: CN (occurrence: CN)
  Receive Date: 20250501
  Receipt Date: 20250501
  Transmission Date: 20250716
  Serious: Yes (Other)
  Sender: MERCK SHARP & DOHME LLC
  Company Number: CN-009507513-2280866

PATIENT
  Age: 77 Year
  Sex: Male
  Weight: 66 kg

DRUGS (3)
  1. KEYTRUDA [Suspect]
     Active Substance: PEMBROLIZUMAB
     Indication: Lung neoplasm malignant
     Dosage: 200 MG, EVERY 3 WEEKS (Q3W)
     Route: 041
     Dates: start: 20250228, end: 20250228
  2. CARBOPLATIN [Suspect]
     Active Substance: CARBOPLATIN
     Indication: Lung neoplasm malignant
     Dosage: 50 MG, EVERY 3 WEEKS (Q3W)
     Route: 041
     Dates: start: 20250228, end: 20250228
  3. PEMETREXED DISODIUM [Suspect]
     Active Substance: PEMETREXED DISODIUM
     Indication: Lung neoplasm malignant
     Dosage: 0.4 G, EVERY 3 WEEKS (Q3W)
     Route: 041
     Dates: start: 20250228, end: 20250228

REACTIONS (2)
  - Nausea [Recovering/Resolving]
  - Neutrophil count decreased [Recovering/Resolving]

NARRATIVE: CASE EVENT DATE: 20250307
